FAERS Safety Report 19115234 (Version 1)
Quarter: 2021Q2

REPORT INFORMATION
  Report Type: Other
  Country: MY (occurrence: MY)
  Receive Date: 20210409
  Receipt Date: 20210409
  Transmission Date: 20210717
  Serious: Yes (Death, Hospitalization, Other)
  Sender: FDA-Public Use
  Company Number: MY-NEOPHARMA INC-000487

PATIENT
  Age: 58 Year
  Sex: Male

DRUGS (4)
  1. AMOXICILLIN?CLAVULANATE [Suspect]
     Active Substance: AMOXICILLIN\CLAVULANIC ACID
     Indication: PROSTATIC ABSCESS
     Dosage: 1 G, BD, ORAL, FOR 3 MONTHS.
     Route: 048
  2. DOXYCYCLINE. [Suspect]
     Active Substance: DOXYCYCLINE
     Indication: BURKHOLDERIA PSEUDOMALLEI INFECTION
     Dosage: 200 MG, OD, ORAL, FOR 3 MONTHS.
     Route: 048
  3. AMOXICILLIN?CLAVULANATE [Suspect]
     Active Substance: AMOXICILLIN\CLAVULANIC ACID
     Indication: BURKHOLDERIA PSEUDOMALLEI INFECTION
     Dosage: 1 G, BD, ORAL, FOR 3 MONTHS.
     Route: 048
  4. DOXYCYCLINE. [Suspect]
     Active Substance: DOXYCYCLINE
     Indication: PROSTATIC ABSCESS
     Dosage: 200 MG, OD, ORAL, FOR 3 MONTHS.
     Route: 048

REACTIONS (3)
  - Burkholderia pseudomallei infection [Fatal]
  - Treatment noncompliance [Fatal]
  - Disease recurrence [Fatal]
